FAERS Safety Report 19965525 (Version 1)
Quarter: 2021Q4

REPORT INFORMATION
  Report Type: Spontaneous
  Country: US (occurrence: US)
  Receive Date: 20211018
  Receipt Date: 20211018
  Transmission Date: 20220303
  Serious: No
  Sender: FDA-Public Use
  Company Number: US-PFIZER INC-2021431888

PATIENT
  Age: 41 Year
  Sex: Male

DRUGS (2)
  1. XELJANZ XR [Suspect]
     Active Substance: TOFACITINIB CITRATE
     Indication: Rheumatoid arthritis
     Dosage: 11 MG, DAILY
     Route: 048
     Dates: start: 20210412
  2. PREDNISONE [Concomitant]
     Active Substance: PREDNISONE
     Dosage: TAPERING DOWN

REACTIONS (2)
  - Arthralgia [Unknown]
  - Arthritis [Unknown]
